FAERS Safety Report 6537742-8 (Version None)
Quarter: 2010Q1

REPORT INFORMATION
  Report Type: 
  Country: None (occurrence: None)
  Receive Date: 20100111
  Receipt Date: 20091123
  Transmission Date: 20100710
  Serious: Yes (Other)
  Sender: FDA-Public Use
  Company Number: 1000011159

PATIENT
  Age: 27 Year
  Sex: Female

DRUGS (6)
  1. ESCITALOPRAM OXALATE [Suspect]
     Indication: ANXIETY
     Dosage: 20 MG (20 MG, 1 IN 1 D), ORAL
     Route: 048
     Dates: start: 20090609, end: 20090609
  2. ESCITALOPRAM OXALATE [Suspect]
     Indication: ANXIETY
     Dosage: SEE IMAGE
     Route: 048
     Dates: start: 20090610, end: 20090614
  3. ESCITALOPRAM OXALATE [Suspect]
     Indication: ANXIETY
     Dosage: SEE IMAGE
     Route: 048
     Dates: start: 20090615, end: 20091120
  4. ESCITALOPRAM OXALATE [Suspect]
     Indication: ANXIETY
     Dosage: SEE IMAGE
     Route: 048
     Dates: start: 20091121, end: 20091122
  5. ESCITALOPRAM OXALATE [Suspect]
     Indication: ANXIETY
     Dosage: SEE IMAGE
     Route: 048
     Dates: start: 20091123
  6. DESOGESTREL AND ETHINYL ESTRADIOL [Concomitant]

REACTIONS (15)
  - ANXIETY [None]
  - DEPERSONALISATION [None]
  - DEPRESSION [None]
  - DIARRHOEA [None]
  - FATIGUE [None]
  - HUNGER [None]
  - HYPERSOMNIA [None]
  - MALAISE [None]
  - METRORRHAGIA [None]
  - OROPHARYNGEAL PAIN [None]
  - OVERDOSE [None]
  - PANIC ATTACK [None]
  - PARAESTHESIA [None]
  - SELF-INJURIOUS IDEATION [None]
  - STOMATITIS [None]
